FAERS Safety Report 7093652-1 (Version None)
Quarter: 2010Q4

REPORT INFORMATION
  Report Type: 
  Country: None (occurrence: None)
  Receive Date: 20101110
  Receipt Date: 20101101
  Transmission Date: 20110411
  Serious: Yes (Hospitalization)
  Sender: FDA-Public Use
  Company Number: US-US-EMD SERONO, INC.-239300K09USA

PATIENT
  Sex: Female
  Weight: 55 kg

DRUGS (2)
  1. REBIF [Suspect]
     Indication: MULTIPLE SCLEROSIS
     Route: 058
     Dates: start: 20070104
  2. BETHANECHOL [Concomitant]
     Indication: URINARY RETENTION
     Route: 065

REACTIONS (3)
  - CARDIAC ENZYMES INCREASED [None]
  - CONVULSION [None]
  - RECTAL HAEMORRHAGE [None]
